FAERS Safety Report 5355297-0 (Version None)
Quarter: 2007Q2

REPORT INFORMATION
  Report Type: 
  Country: None (occurrence: None)
  Receive Date: 20070611
  Receipt Date: 20070611
  Transmission Date: 20071010
  Serious: Yes (Other)
  Sender: FDA-Public Use
  Company Number: None

PATIENT
  Age: 58 Year
  Sex: Female
  Weight: 58.9676 kg

DRUGS (2)
  1. PROPOFOL [Suspect]
     Indication: ENDOSCOPY
     Dosage: IV
     Route: 042
     Dates: start: 20070501
  2. PROPOFOL [Suspect]
     Indication: SEDATIVE THERAPY
     Dosage: IV
     Route: 042
     Dates: start: 20070501

REACTIONS (10)
  - ASTHENIA [None]
  - BODY TEMPERATURE INCREASED [None]
  - CHILLS [None]
  - COGNITIVE DISORDER [None]
  - DECREASED APPETITE [None]
  - HEADACHE [None]
  - NAUSEA [None]
  - VISION BLURRED [None]
  - VOMITING [None]
  - WEIGHT DECREASED [None]
